FAERS Safety Report 8854972 (Version 1)
Quarter: 2012Q4

REPORT INFORMATION
  Report Type: 
  Country: GB (occurrence: GB)
  Receive Date: 20121023
  Receipt Date: 20121023
  Transmission Date: 20130627
  Serious: Yes (Other)
  Sender: FDA-Public Use
  Company Number: GB-ACCORD-014988

PATIENT
  Age: 66 Year
  Sex: Male

DRUGS (6)
  1. IRINOTECAN HYDROCHLORIDE [Suspect]
     Indication: METASTATIC COLORECTAL CANCER
     Route: 065
  2. FLUOROURACIL [Suspect]
     Indication: METASTATIC COLORECTAL CANCER
     Route: 065
  3. ONDANSETRON [Concomitant]
     Indication: ANTIEMETIC SUPPORTIVE CARE
     Route: 048
     Dates: start: 20070222, end: 20070913
  4. DEXAMETHASONE [Concomitant]
     Indication: ANTIEMETIC SUPPORTIVE CARE
     Route: 048
  5. ELOXATIN [Suspect]
     Indication: METASTATIC COLORECTAL CANCER
     Route: 042
     Dates: start: 20070222, end: 20070913
  6. FOLINIC ACID [Suspect]
     Indication: METASTATIC COLORECTAL CANCER
     Route: 065

REACTIONS (5)
  - Neuropathy peripheral [Unknown]
  - Upper respiratory tract infection [Unknown]
  - Lethargy [Unknown]
  - Peripheral sensory neuropathy [Unknown]
  - Epistaxis [Unknown]
